FAERS Safety Report 14913509 (Version 3)
Quarter: 2018Q3

REPORT INFORMATION
  Report Type: Report from Study
  Country: CA (occurrence: CA)
  Receive Date: 20180518
  Receipt Date: 20180824
  Transmission Date: 20181010
  Serious: Yes (Hospitalization, Other)
  Sender: FDA-Public Use
  Company Number: CA-OTSUKA-2017_019724

PATIENT
  Age: 43 Year
  Sex: Male

DRUGS (12)
  1. TOLVAPTAN [Suspect]
     Active Substance: TOLVAPTAN
     Dosage: 15 MG, QD (IN EVENING)
     Route: 048
     Dates: start: 20180406
  2. TOLVAPTAN [Suspect]
     Active Substance: TOLVAPTAN
     Indication: CONGENITAL CYSTIC KIDNEY DISEASE
     Dosage: 45 MG, QD (IN MORNING)
     Route: 048
     Dates: start: 20170901, end: 20180306
  3. TOLVAPTAN [Suspect]
     Active Substance: TOLVAPTAN
     Dosage: UNK
     Route: 065
     Dates: start: 201802
  4. TOLVAPTAN [Suspect]
     Active Substance: TOLVAPTAN
     Dosage: 60 MG, QD (IN MORNING)
     Route: 048
     Dates: start: 20180307, end: 20180405
  5. TEVA?DORZOTIMOL [Concomitant]
     Active Substance: DORZOLAMIDE\TIMOLOL
     Indication: PRODUCT USED FOR UNKNOWN INDICATION
     Dosage: 500 MG, TID
     Route: 048
  6. TOLVAPTAN [Suspect]
     Active Substance: TOLVAPTAN
     Dosage: 45 MG, QD (IN MORNING)
     Route: 048
     Dates: start: 20180406
  7. AMLODIPINE [Suspect]
     Active Substance: AMLODIPINE BESYLATE
     Indication: HYPERTENSION
     Dosage: 5 MG X 1 OD
     Route: 065
  8. AVAPRO [Concomitant]
     Active Substance: IRBESARTAN
     Indication: PRODUCT USED FOR UNKNOWN INDICATION
     Dosage: 300 MG, QD (X1)
     Route: 065
  9. METFORMIN [Concomitant]
     Active Substance: METFORMIN HYDROCHLORIDE
     Indication: PRODUCT USED FOR UNKNOWN INDICATION
     Dosage: 500 MG, BID
     Route: 065
  10. TOLVAPTAN [Suspect]
     Active Substance: TOLVAPTAN
     Dosage: 15 MG, QD (IN EVENING)
     Route: 048
     Dates: start: 20170901, end: 20180306
  11. TOLVAPTAN [Suspect]
     Active Substance: TOLVAPTAN
     Dosage: 30 MG, QD (IN EVENING)
     Route: 048
     Dates: start: 20180307, end: 20180405
  12. ROSUVASTATIN. [Concomitant]
     Active Substance: ROSUVASTATIN
     Indication: PRODUCT USED FOR UNKNOWN INDICATION
     Dosage: UNK
     Route: 065

REACTIONS (30)
  - Somnolence [Unknown]
  - Hypoglycaemia [Unknown]
  - Thirst [Unknown]
  - Autoscopy [Unknown]
  - Adverse event [Unknown]
  - Hypertension [Recovered/Resolved]
  - Alanine aminotransferase increased [Unknown]
  - Hyponatraemia [Unknown]
  - Aptyalism [Unknown]
  - Glomerular filtration rate increased [Unknown]
  - Diabetes mellitus inadequate control [Unknown]
  - Muscle spasms [Unknown]
  - Dry mouth [Unknown]
  - Polydipsia [Unknown]
  - Stress [Unknown]
  - Weight decreased [Unknown]
  - Polyuria [Unknown]
  - Treatment noncompliance [Unknown]
  - Heart rate increased [Recovered/Resolved]
  - Sleep disorder [Unknown]
  - Panic reaction [Unknown]
  - Visual impairment [Unknown]
  - Loss of consciousness [Unknown]
  - Dehydration [Unknown]
  - Drug dose omission [Unknown]
  - Therapy cessation [Unknown]
  - Blood glucose increased [Recovered/Resolved]
  - Nocturia [Unknown]
  - Dizziness [Recovered/Resolved]
  - Asthenia [Unknown]

NARRATIVE: CASE EVENT DATE: 20170901
